FAERS Safety Report 10607326 (Version 1)
Quarter: 2014Q4

REPORT INFORMATION
  Report Type: Spontaneous
  Country: US (occurrence: None)
  Receive Date: 20141124
  Receipt Date: 20141124
  Transmission Date: 20150529
  Serious: Yes (Hospitalization)
  Sender: FDA-Public Use
  Company Number: None

PATIENT
  Age: 40 Year
  Sex: Female
  Weight: 120 kg

DRUGS (9)
  1. TRAMADOL [Concomitant]
     Active Substance: TRAMADOL
  2. MAXZIDE [Concomitant]
     Active Substance: HYDROCHLOROTHIAZIDE\TRIAMTERENE
  3. VITAMIN D [Concomitant]
     Active Substance: CHOLECALCIFEROL
  4. XARELTO [Suspect]
     Active Substance: RIVAROXABAN
     Indication: DEEP VEIN THROMBOSIS
     Route: 048
  5. CALCIUM CARBONATE. [Concomitant]
     Active Substance: CALCIUM CARBONATE
  6. ASA [Suspect]
     Active Substance: ASPIRIN
     Dosage: CHRONIC
     Route: 048
  7. ALEVE [Suspect]
     Active Substance: NAPROXEN SODIUM
  8. THERAGRAN [Concomitant]
     Active Substance: VITAMINS
  9. NORCO [Concomitant]
     Active Substance: ACETAMINOPHEN\HYDROCODONE BITARTRATE

REACTIONS (5)
  - Upper gastrointestinal haemorrhage [None]
  - Menorrhagia [None]
  - Gastritis [None]
  - Melaena [None]
  - Haemorrhagic anaemia [None]

NARRATIVE: CASE EVENT DATE: 20140721
